FAERS Safety Report 20994439 (Version 1)
Quarter: 2022Q2

REPORT INFORMATION
  Report Type: Report from Study
  Country: AR (occurrence: AR)
  Receive Date: 20220622
  Receipt Date: 20220622
  Transmission Date: 20220721
  Serious: Yes (Death)
  Sender: FDA-Public Use
  Company Number: AR-BIOGEN-2022BI01133836

PATIENT
  Age: 1 Year
  Sex: Male

DRUGS (2)
  1. SPINRAZA [Suspect]
     Active Substance: NUSINERSEN
     Indication: Spinal muscular atrophy
     Dates: start: 20201222
  2. ENALAPRIL [Concomitant]
     Active Substance: ENALAPRIL
     Indication: Hypertension

REACTIONS (1)
  - Respiratory arrest [Fatal]

NARRATIVE: CASE EVENT DATE: 20220210
